FAERS Safety Report 22010158 (Version 2)
Quarter: 2023Q1

REPORT INFORMATION
  Report Type: Spontaneous
  Country: DE (occurrence: DE)
  Receive Date: 20230220
  Receipt Date: 20230224
  Transmission Date: 20230417
  Serious: Yes (Death, Other)
  Sender: FDA-Public Use
  Company Number: DE-TEVA-2023-DE-2857208

PATIENT
  Age: 54 Year
  Sex: Female

DRUGS (2)
  1. DEXAMETHASONE [Suspect]
     Active Substance: DEXAMETHASONE
     Indication: Brain neoplasm
     Route: 065
  2. DEXAMETHASONE [Suspect]
     Active Substance: DEXAMETHASONE
     Indication: Metastases to central nervous system

REACTIONS (14)
  - Death [Fatal]
  - Skin disorder [Unknown]
  - Oral candidiasis [Unknown]
  - Speech disorder [Unknown]
  - Dysphagia [Unknown]
  - Eating disorder [Unknown]
  - Eye discharge [Unknown]
  - Visual acuity reduced [Unknown]
  - Skin exfoliation [Unknown]
  - Skin haemorrhage [Unknown]
  - Visual impairment [Unknown]
  - Lymphadenopathy [Unknown]
  - General physical health deterioration [Unknown]
  - Palliative care [Unknown]
